FAERS Safety Report 17297226 (Version 2)
Quarter: 2022Q1

REPORT INFORMATION
  Report Type: Spontaneous
  Country: DK (occurrence: DK)
  Receive Date: 20200121
  Receipt Date: 20220304
  Transmission Date: 20220424
  Serious: Yes (Hospitalization)
  Sender: FDA-Public Use
  Company Number: DK-JNJFOC-20191005547

PATIENT
  Age: 52 Year
  Sex: Male
  Weight: 94.7 kg

DRUGS (18)
  1. DEXAMETHASONE [Suspect]
     Active Substance: DEXAMETHASONE
     Indication: Product used for unknown indication
     Route: 048
     Dates: start: 20190712, end: 20190730
  2. VELCADE [Suspect]
     Active Substance: BORTEZOMIB
     Indication: Plasma cell myeloma
     Dosage: CYCLE 3 DAY 11
     Route: 058
     Dates: start: 20190712
  3. VELCADE [Suspect]
     Active Substance: BORTEZOMIB
     Dosage: 01/JUL/2019, 12/JUL/2019. PAUSED ON DAY 8 AND 11 OF CYCLE 3. DELAYED UNTIL 12/JUL/2019 AND AGAIN ON
     Route: 058
     Dates: start: 20190502, end: 201907
  4. LENALIDOMIDE [Suspect]
     Active Substance: LENALIDOMIDE
     Indication: Plasma cell myeloma
     Route: 048
     Dates: start: 20190502, end: 20190614
  5. DEXAMETHASONE [Suspect]
     Active Substance: DEXAMETHASONE
     Indication: Plasma cell myeloma
     Dosage: PAUSED ON DAY 7 OF C3 (04/JUL-2019). RESTARTED ON 12-JUL-2019 AND 30-JUL-2019 FOR 4 DAYS
     Route: 048
     Dates: start: 20190502, end: 20190802
  6. DEXAMETHASONE [Suspect]
     Active Substance: DEXAMETHASONE
     Route: 048
     Dates: start: 20190712, end: 20190730
  7. ACETAMINOPHEN [Concomitant]
     Active Substance: ACETAMINOPHEN
     Indication: Deep vein thrombosis
     Route: 048
     Dates: start: 20190523
  8. ACETAMINOPHEN [Concomitant]
     Active Substance: ACETAMINOPHEN
     Indication: Pain
     Route: 065
  9. ACETAMINOPHEN [Concomitant]
     Active Substance: ACETAMINOPHEN
     Indication: Hordeolum
     Dosage: AS REQUIRED
     Route: 048
  10. ASPIRIN [Concomitant]
     Active Substance: ASPIRIN
     Indication: Thrombosis prophylaxis
     Route: 048
     Dates: start: 20190502, end: 20190524
  11. MAGNESIUM OXIDE [Concomitant]
     Active Substance: MAGNESIUM OXIDE
     Indication: Constipation
     Dosage: FREQUENCY: AS NECESSARY
     Route: 048
     Dates: start: 20190520
  12. ACYCLOVIR [Concomitant]
     Active Substance: ACYCLOVIR
     Indication: Herpes zoster
     Route: 048
     Dates: start: 20190627
  13. ACYCLOVIR [Concomitant]
     Active Substance: ACYCLOVIR
     Route: 048
     Dates: start: 20190502, end: 20190616
  14. ACYCLOVIR [Concomitant]
     Active Substance: ACYCLOVIR
     Route: 048
     Dates: start: 20190502, end: 20190614
  15. CLINDAMYCIN [Concomitant]
     Active Substance: CLINDAMYCIN
     Indication: Hordeolum
     Route: 048
     Dates: start: 20190614, end: 20190620
  16. CHLORAMPHENICOL [Concomitant]
     Active Substance: CHLORAMPHENICOL
     Indication: Hordeolum
     Route: 065
     Dates: start: 20190606
  17. PANTOPRAZOLE SODIUM [Concomitant]
     Active Substance: PANTOPRAZOLE SODIUM
     Indication: Gastrooesophageal reflux disease
     Route: 048
     Dates: start: 20190531
  18. INNOHEP [Concomitant]
     Active Substance: TINZAPARIN SODIUM
     Indication: Deep vein thrombosis
     Route: 058
     Dates: start: 20190523

REACTIONS (1)
  - Non-alcoholic steatohepatitis [Recovered/Resolved with Sequelae]

NARRATIVE: CASE EVENT DATE: 20190614
